FAERS Safety Report 4733216-5 (Version None)
Quarter: 2005Q3

REPORT INFORMATION
  Report Type: 
  Country: None (occurrence: None)
  Receive Date: 20050803
  Receipt Date: 20050725
  Transmission Date: 20060218
  Serious: Yes (Death, Hospitalization)
  Sender: FDA-Public Use
  Company Number: FR-SANOFI-SYNTHELABO-A02200501988

PATIENT
  Age: 64 Year
  Sex: Male
  Weight: 71 kg

DRUGS (5)
  1. XATRAL [Suspect]
     Indication: DRUG USE FOR UNKNOWN INDICATION
     Route: 048
     Dates: start: 20030615
  2. CORVASAL [Suspect]
     Indication: DRUG USE FOR UNKNOWN INDICATION
     Dosage: 8 MG
     Route: 048
     Dates: start: 20030615
  3. VASTAREL [Suspect]
     Indication: DRUG USE FOR UNKNOWN INDICATION
     Dosage: UNK
     Route: 048
     Dates: start: 20030615
  4. SKENAN [Suspect]
     Indication: DRUG USE FOR UNKNOWN INDICATION
     Dosage: 80 MG
     Route: 048
     Dates: start: 20040615
  5. TARCEVA [Suspect]
     Indication: DRUG USE FOR UNKNOWN INDICATION
     Dosage: 150 MG
     Route: 048
     Dates: start: 20050602

REACTIONS (10)
  - ACUTE RESPIRATORY FAILURE [None]
  - ANOREXIA [None]
  - DYSPHAGIA [None]
  - HAEMOPTYSIS [None]
  - LUNG DISORDER [None]
  - LYMPHANGIOSIS CARCINOMATOSA [None]
  - NAUSEA [None]
  - PARAESTHESIA [None]
  - STAPHYLOCOCCAL INFECTION [None]
  - WEIGHT DECREASED [None]
